FAERS Safety Report 4408584-4 (Version None)
Quarter: 2004Q3

REPORT INFORMATION
  Report Type: 
  Country: None (occurrence: None)
  Receive Date: 20040723
  Receipt Date: 20040712
  Transmission Date: 20050211
  Serious: Yes (Other)
  Sender: FDA-Public Use
  Company Number: 2004223486JP

PATIENT
  Age: 64 Year
  Sex: Female
  Weight: 56 kg

DRUGS (4)
  1. DOXORUBICIN HYDROCHLORIDE [Suspect]
     Indication: BLADDER CANCER
     Dosage: 40 MG, QD, IV
     Route: 042
     Dates: start: 20040331, end: 20040331
  2. METHOTREXATE [Suspect]
     Indication: BLADDER CANCER
     Dosage: 40 MG, QD, IV
     Route: 042
     Dates: start: 20040330, end: 20040330
  3. VINBLASTINE SULFATE [Suspect]
     Indication: BLADDER CANCER
     Dosage: 4 MG, QD, IV
     Route: 042
     Dates: start: 20040331, end: 20040331
  4. CISPLATIN [Suspect]
     Indication: BLADDER CANCER
     Dosage: 100 MG, QD, IV
     Route: 042
     Dates: start: 20040331, end: 20040331

REACTIONS (1)
  - NEUTROPENIA [None]
